FAERS Safety Report 17242438 (Version 1)
Quarter: 2020Q1

REPORT INFORMATION
  Report Type: Spontaneous
  Country: US (occurrence: US)
  Receive Date: 20200106
  Receipt Date: 20200106
  Transmission Date: 20200409
  Serious: Yes (Other)
  Sender: FDA-Public Use
  Company Number: None

PATIENT
  Age: 54 Year
  Sex: Male
  Weight: 82.8 kg

DRUGS (10)
  1. HYDROCODONE-ACETAMINOPHEN [Concomitant]
     Active Substance: ACETAMINOPHEN\HYDROCODONE
  2. HYDROCHLOROTHIAZIDE. [Concomitant]
     Active Substance: HYDROCHLOROTHIAZIDE
  3. LOSARTAN. [Concomitant]
     Active Substance: LOSARTAN
  4. COLACE [Concomitant]
     Active Substance: DOCUSATE SODIUM
  5. LEVOCETIRIZINE [Concomitant]
     Active Substance: LEVOCETIRIZINE
  6. OXCARBAZEPINE. [Concomitant]
     Active Substance: OXCARBAZEPINE
  7. GLEOSTINE [Suspect]
     Active Substance: LOMUSTINE
     Indication: BRAIN NEOPLASM MALIGNANT
     Dosage: ?          OTHER FREQUENCY:100MG EVERY 6 WEEK;?
     Route: 048
     Dates: start: 20190501, end: 20191231
  8. ASPIRIN. [Concomitant]
     Active Substance: ASPIRIN
  9. ATORVASTATIN [Concomitant]
     Active Substance: ATORVASTATIN
  10. AFRIN [Concomitant]
     Active Substance: OXYMETAZOLINE

REACTIONS (1)
  - Disease progression [None]

NARRATIVE: CASE EVENT DATE: 20200106
